FAERS Safety Report 4596942-7 (Version None)
Quarter: 2005Q1

REPORT INFORMATION
  Report Type: 
  Country: None (occurrence: None)
  Receive Date: 20050228
  Receipt Date: 20041105
  Transmission Date: 20050727
  Serious: Yes (Other)
  Sender: FDA-Public Use
  Company Number: 2004088892

PATIENT
  Sex: Male
  Weight: 81.6475 kg

DRUGS (11)
  1. CELEBREX [Suspect]
     Indication: OSTEOARTHRITIS
     Dosage: 400 MG (200 MG, W IN 1 D), ORAL
     Route: 048
     Dates: start: 20000301, end: 20020701
  2. ROFECOXIB [Suspect]
     Indication: ILL-DEFINED DISORDER
     Dates: start: 20020701, end: 20040930
  3. TOCOPHEROL (TOCOPHEROL) [Concomitant]
  4. RETINOL (RETINOL) [Concomitant]
  5. B-KOMPLEX ^LECIVA^ (CALCIUM PANTOTHENATE, NICOTINAMIDE, PYRIDOXINE HYD [Concomitant]
  6. MULTIVITAMINS (ASCORBIC ACID, ERGOCALCIFEROL, FOLIC ACID, NICOTINAMIDE [Concomitant]
  7. GLUCOSAMINE SULFATE/MINERALS/MULTIVITAMINS (GLUCOSAMINE SULFATE, MINER [Concomitant]
  8. ERGOCALCIFEROL (ERGOCALCIFEROL) [Concomitant]
  9. ASCORBIC ACID [Concomitant]
  10. DIGOXIN [Concomitant]
  11. VITAMINS (VITAMINS) [Concomitant]

REACTIONS (9)
  - ARRHYTHMIA [None]
  - ARTHRALGIA [None]
  - CARDIAC DISORDER [None]
  - CONDITION AGGRAVATED [None]
  - DEHYDRATION [None]
  - DRUG EFFECT DECREASED [None]
  - EXTRASYSTOLES [None]
  - MUSCULOSKELETAL STIFFNESS [None]
  - PAIN [None]
